FAERS Safety Report 12355268 (Version 1)
Quarter: 2016Q2

REPORT INFORMATION
  Report Type: Spontaneous
  Country: US (occurrence: US)
  Receive Date: 20160511
  Receipt Date: 20160511
  Transmission Date: 20160815
  Serious: Yes (Hospitalization)
  Sender: FDA-Public Use
  Company Number: US-B.I. PHARMACEUTICALS,INC./RIDGEFIELD-2016-BI-28603BI

PATIENT
  Sex: Male

DRUGS (1)
  1. PRADAXA [Suspect]
     Active Substance: DABIGATRAN ETEXILATE MESYLATE
     Indication: ATRIAL FIBRILLATION
     Dosage: 300 MG
     Route: 048
     Dates: start: 2011

REACTIONS (7)
  - Anaemia [Unknown]
  - Pulmonary haemorrhage [Unknown]
  - Haemorrhagic diathesis [Unknown]
  - Disseminated intravascular coagulation [Unknown]
  - Toxicity to various agents [Unknown]
  - Renal failure [Unknown]
  - Haemolysis [Unknown]

NARRATIVE: CASE EVENT DATE: 20121216
